FAERS Safety Report 9618425 (Version 1)
Quarter: 2013Q4

REPORT INFORMATION
  Report Type: Spontaneous
  Country: US (occurrence: US)
  Receive Date: 20131014
  Receipt Date: 20131014
  Transmission Date: 20140711
  Serious: Yes (Other)
  Sender: FDA-Public Use
  Company Number: US-PAR PHARMACEUTICAL, INC-2013SCPR007706

PATIENT
  Sex: 0

DRUGS (1)
  1. FENTANYL TRANSDERMAL SYSTEM [Suspect]
     Indication: PRODUCT USED FOR UNKNOWN INDICATION
     Dosage: UNK, UNKNOWN
     Route: 062

REACTIONS (7)
  - Head injury [Recovered/Resolved]
  - Fall [Unknown]
  - Amnesia [Recovered/Resolved]
  - Musculoskeletal stiffness [Recovered/Resolved]
  - Excoriation [Recovered/Resolved]
  - Somnolence [Recovered/Resolved]
  - Product quality issue [Unknown]
